FAERS Safety Report 11861770 (Version 3)
Quarter: 2016Q1

REPORT INFORMATION
  Report Type: Spontaneous
  Country: US (occurrence: US)
  Receive Date: 20151222
  Receipt Date: 20160219
  Transmission Date: 20160526
  Serious: No
  Sender: FDA-Public Use
  Company Number: US-ACTELION PHARMACEUTICALS US, INC.-A-US2015-128239

PATIENT
  Age: 48 Year
  Sex: Female

DRUGS (3)
  1. VELETRI [Suspect]
     Active Substance: EPOPROSTENOL
     Indication: PULMONARY ARTERIAL HYPERTENSION
     Dosage: 21 NG/KG, PER MIN
     Route: 042
     Dates: start: 20150407
  2. COUMADIN [Concomitant]
     Active Substance: WARFARIN SODIUM
  3. SILDENAFIL. [Concomitant]
     Active Substance: SILDENAFIL

REACTIONS (19)
  - Nasal congestion [Unknown]
  - Body temperature increased [Unknown]
  - Dizziness [Recovering/Resolving]
  - Rhinorrhoea [Unknown]
  - Fall [Unknown]
  - Chills [Unknown]
  - Catheter site inflammation [Recovered/Resolved]
  - Pain [Unknown]
  - Joint injury [Unknown]
  - Insomnia [Unknown]
  - Diarrhoea [Unknown]
  - Catheter site scab [Unknown]
  - Catheter site pain [Not Recovered/Not Resolved]
  - Epistaxis [Recovered/Resolved]
  - Device alarm issue [Unknown]
  - Pallor [Recovering/Resolving]
  - Vomiting [Unknown]
  - Catheter site discharge [Recovered/Resolved]
  - Device dislocation [Recovered/Resolved]

NARRATIVE: CASE EVENT DATE: 20151125
